FAERS Safety Report 14639012 (Version 11)
Quarter: 2019Q1

REPORT INFORMATION
  Report Type: Report from Study
  Country: US (occurrence: US)
  Receive Date: 20180315
  Receipt Date: 20190110
  Transmission Date: 20190417
  Serious: Yes (Other)
  Sender: FDA-Public Use
  Company Number: US-BRISTOL-MYERS SQUIBB COMPANY-BMS-2017-116216

PATIENT
  Sex: Male

DRUGS (5)
  1. FINASTERIDE. [Concomitant]
     Active Substance: FINASTERIDE
     Indication: PRODUCT USED FOR UNKNOWN INDICATION
     Dosage: UNK
     Route: 065
  2. ONDANSETRON [Concomitant]
     Active Substance: ONDANSETRON
     Indication: PRODUCT USED FOR UNKNOWN INDICATION
     Route: 065
  3. ZOLOFT [Suspect]
     Active Substance: SERTRALINE HYDROCHLORIDE
     Indication: DEPRESSION
     Route: 005
  4. NIVOLUMAB [Suspect]
     Active Substance: NIVOLUMAB
     Indication: NON-SMALL CELL LUNG CANCER
     Dosage: Q2WK
     Route: 042
     Dates: start: 2018
  5. MELATONIN [Concomitant]
     Active Substance: MELATONIN
     Indication: PRODUCT USED FOR UNKNOWN INDICATION
     Dosage: UNK
     Route: 065

REACTIONS (19)
  - Urine output decreased [Not Recovered/Not Resolved]
  - Arthralgia [Not Recovered/Not Resolved]
  - Musculoskeletal stiffness [Not Recovered/Not Resolved]
  - Headache [Unknown]
  - Depression [Not Recovered/Not Resolved]
  - Pollakiuria [Not Recovered/Not Resolved]
  - Fatigue [Not Recovered/Not Resolved]
  - Dyspnoea [Recovering/Resolving]
  - Nausea [Recovering/Resolving]
  - Dyspnoea exertional [Not Recovered/Not Resolved]
  - Joint stiffness [Not Recovered/Not Resolved]
  - Paraesthesia [Unknown]
  - Pain in extremity [Unknown]
  - Myalgia [Unknown]
  - Memory impairment [Unknown]
  - Musculoskeletal pain [Not Recovered/Not Resolved]
  - Diarrhoea [Recovered/Resolved]
  - Cough [Unknown]
  - Rash [Recovered/Resolved]
